FAERS Safety Report 6655736-9 (Version None)
Quarter: 2010Q1

REPORT INFORMATION
  Report Type: 
  Country: None (occurrence: None)
  Receive Date: 20100329
  Receipt Date: 20100316
  Transmission Date: 20100710
  Serious: Yes (Other)
  Sender: FDA-Public Use
  Company Number: US-ROCHE-675667

PATIENT
  Sex: Female
  Weight: 62.6 kg

DRUGS (9)
  1. XELODA [Suspect]
     Indication: BREAST CANCER
     Route: 048
     Dates: start: 20091118, end: 20091216
  2. XELODA [Suspect]
     Dosage: DOSING REGIMEN REPORTED AS 1000 MG TWICE DAILY X 7 DAYS; PERMANENTLY DISCONTINUED.
     Route: 048
     Dates: start: 20100129, end: 20100219
  3. AVASTIN [Suspect]
     Indication: BREAST CANCER
     Route: 042
  4. ZOMETA [Concomitant]
     Route: 042
  5. PHENERGAN HCL [Concomitant]
  6. VITAMIN B-12 [Concomitant]
  7. VITAMIN C [Concomitant]
  8. TURMERIC [Concomitant]
  9. AROMASIN [Concomitant]
     Dosage: DRUG REPORTED AS AROMISON

REACTIONS (14)
  - ALANINE AMINOTRANSFERASE INCREASED [None]
  - ALBUMIN GLOBULIN RATIO DECREASED [None]
  - ASPARTATE AMINOTRANSFERASE INCREASED [None]
  - ASTHENIA [None]
  - BLOOD ALBUMIN DECREASED [None]
  - BLOOD ALKALINE PHOSPHATASE INCREASED [None]
  - BLOOD BILIRUBIN INCREASED [None]
  - DEHYDRATION [None]
  - DIARRHOEA [None]
  - DYSPNOEA [None]
  - HEPATIC LESION [None]
  - ILL-DEFINED DISORDER [None]
  - MALIGNANT NEOPLASM PROGRESSION [None]
  - NAUSEA [None]
